FAERS Safety Report 26012452 (Version 1)
Quarter: 2025Q4

REPORT INFORMATION
  Report Type: Spontaneous
  Country: GB (occurrence: GB)
  Receive Date: 20251107
  Receipt Date: 20251107
  Transmission Date: 20260118
  Serious: Yes (Other)
  Sender: MYLAN
  Company Number: GB-MHRA-TPP24227911C10374489YC1761930402049

PATIENT
  Age: 63 Year
  Sex: Female
  Weight: 73 kg

DRUGS (4)
  1. LANSOPRAZOLE [Suspect]
     Active Substance: LANSOPRAZOLE
     Indication: Ill-defined disorder
     Dosage: 15 MILLIGRAM, QD (TAKE ONE CAPSULE ONCE DAILY WHILE TAKING NAPROXEN)
     Dates: start: 20251013
  2. NAPROXEN [Concomitant]
     Active Substance: NAPROXEN
     Indication: Ill-defined disorder
     Dosage: 1 DOSAGE FORM, BID (TAKE ONE TABLET TWICE DAILY WHEN REQUIRED FOR P...)
     Dates: start: 20251013, end: 20251031
  3. COCODAMOL [Concomitant]
     Active Substance: ACETAMINOPHEN\CODEINE PHOSPHATE
     Indication: Ill-defined disorder
     Dosage: 2 DOSAGE FORM, QID (TAKE TWO 4 TIMES/DAY)
     Dates: start: 20251031
  4. BETAMETHASONE DIPROPIONATE [Concomitant]
     Active Substance: BETAMETHASONE DIPROPIONATE
     Indication: Ill-defined disorder
     Dosage: UNK (APPLY 1-2 TIMES/DAY FOR FLARES AS ADVISED BY DE...)

REACTIONS (1)
  - Brain fog [Recovered/Resolved]
